FAERS Safety Report 7716947-4 (Version None)
Quarter: 2011Q3

REPORT INFORMATION
  Report Type: 
  Country: None (occurrence: None)
  Receive Date: 20110829
  Receipt Date: 20110818
  Transmission Date: 20111222
  Serious: Yes (Other)
  Sender: FDA-Public Use
  Company Number: US-ASTRAZENECA-2010SE30512

PATIENT
  Age: 56 Year
  Sex: Female

DRUGS (9)
  1. SEROQUEL [Suspect]
     Indication: BIPOLAR DISORDER
     Route: 048
  2. SEROQUEL [Suspect]
     Route: 048
  3. XANEX [Concomitant]
     Indication: ANXIETY
  4. SEROQUEL [Suspect]
     Route: 048
     Dates: start: 20100624
  5. SEROQUEL [Suspect]
     Route: 048
  6. SEROQUEL [Suspect]
     Route: 048
  7. SEROQUEL [Suspect]
     Indication: MOOD SWINGS
     Route: 048
  8. SEROQUEL [Suspect]
     Route: 048
  9. SEROQUEL [Suspect]
     Route: 048
     Dates: start: 20100624

REACTIONS (22)
  - AGITATION [None]
  - BIPOLAR DISORDER [None]
  - FEELING ABNORMAL [None]
  - HEPATITIS C [None]
  - CONVULSION [None]
  - LIVER DISORDER [None]
  - RESTLESSNESS [None]
  - MENTAL DISORDER [None]
  - PRODUCT SIZE ISSUE [None]
  - HYPERTENSION [None]
  - ATTENTION DEFICIT/HYPERACTIVITY DISORDER [None]
  - INSOMNIA [None]
  - HEADACHE [None]
  - TACHYPHRENIA [None]
  - DEPRESSED MOOD [None]
  - ANGER [None]
  - SUICIDAL IDEATION [None]
  - HOMICIDAL IDEATION [None]
  - ROAD TRAFFIC ACCIDENT [None]
  - DIABETES MELLITUS [None]
  - OBSESSIVE-COMPULSIVE DISORDER [None]
  - DRUG DOSE OMISSION [None]
